FAERS Safety Report 7225522-X (Version None)
Quarter: 2011Q1

REPORT INFORMATION
  Report Type: 
  Country: None (occurrence: None)
  Receive Date: 20110113
  Receipt Date: 20110105
  Transmission Date: 20110831
  Serious: Yes (Other)
  Sender: FDA-Public Use
  Company Number: IN-PFIZER INC-2011005499

PATIENT
  Age: 64 Year
  Sex: Male

DRUGS (1)
  1. MEDROL [Suspect]
     Dosage: 16 MG, 1X/DAY
     Route: 048
     Dates: start: 20101227, end: 20110105

REACTIONS (3)
  - PRURITUS [None]
  - ERYTHEMA [None]
  - DRUG ERUPTION [None]
